FAERS Safety Report 4617241-0 (Version None)
Quarter: 2005Q1

REPORT INFORMATION
  Report Type: 
  Country: None (occurrence: None)
  Receive Date: 20050323
  Receipt Date: 20050228
  Transmission Date: 20050727
  Serious: Yes (Other)
  Sender: FDA-Public Use
  Company Number: JP-NOVOPROD-242680

PATIENT
  Age: 60 Year
  Sex: Female
  Weight: 44 kg

DRUGS (8)
  1. INNOLET R CHU [Suspect]
     Indication: DIABETES MELLITUS
     Dosage: 12-15 IU MORNING
  2. INNOLET R CHU [Suspect]
     Dosage: 4-6 IU EVENING
  3. ATROPINE [Concomitant]
     Dosage: .4 MG, UNK
  4. MIDAZOLAM [Concomitant]
     Dosage: 2 MG, 0.5 HOUR BEFORE SURGERY
     Route: 030
  5. FENTANYL [Concomitant]
     Dosage: 100 UG, UNK
  6. THIAMYLAL SODIUM [Concomitant]
     Dosage: 150 MG, UNK
  7. VECURONIUM BROMIDE [Concomitant]
  8. GLYCYRRHIZINATE POTASSIUM [Concomitant]
     Indication: HEPATITIS C

REACTIONS (4)
  - DIABETES MELLITUS INADEQUATE CONTROL [None]
  - HYPOGLYCAEMIA [None]
  - HYPOKALAEMIA [None]
  - TONGUE NEOPLASM MALIGNANT STAGE UNSPECIFIED [None]
